FAERS Safety Report 4547400-7 (Version None)
Quarter: 2005Q1

REPORT INFORMATION
  Report Type: 
  Country: None (occurrence: None)
  Receive Date: 20041227
  Receipt Date: 20040930
  Transmission Date: 20050727
  Serious: No
  Sender: FDA-Public Use
  Company Number: 04P-163-0275332-00

PATIENT
  Age: 55 Year
  Sex: Female

DRUGS (8)
  1. HUMIRA [Suspect]
     Indication: RHEUMATOID ARTHRITIS
     Dosage: 40 MG, 1 IN 2 WK, SUBCUTANEOUS
     Route: 058
     Dates: start: 20040825
  2. LEVOTHYROXINE SODIUM [Concomitant]
  3. DIAZEPAM [Concomitant]
  4. CIMETIDINE [Concomitant]
  5. FLUOXETINE HYDROCHLORIDE [Concomitant]
  6. ESTROGENS CONJUGATED [Concomitant]
  7. HYDROCODONE [Concomitant]
  8. METHOTREXATE [Concomitant]

REACTIONS (1)
  - HEADACHE [None]
